FAERS Safety Report 25566324 (Version 1)
Quarter: 2025Q3

REPORT INFORMATION
  Report Type: Spontaneous
  Country: US (occurrence: US)
  Receive Date: 20250716
  Receipt Date: 20250716
  Transmission Date: 20251020
  Serious: Yes (Life-Threatening, Other)
  Sender: PFIZER
  Company Number: US-PFIZER INC-PV202500084149

PATIENT
  Age: 27 Year
  Sex: Male

DRUGS (3)
  1. BLEOMYCIN SULFATE [Suspect]
     Active Substance: BLEOMYCIN SULFATE
     Indication: Germ cell neoplasm
  2. ETOPOSIDE [Concomitant]
     Active Substance: ETOPOSIDE
     Indication: Germ cell neoplasm
  3. CISPLATIN [Concomitant]
     Active Substance: CISPLATIN
     Indication: Germ cell neoplasm

REACTIONS (2)
  - Pulmonary toxicity [Unknown]
  - Off label use [Unknown]
